FAERS Safety Report 8509572-9 (Version None)
Quarter: 2012Q3

REPORT INFORMATION
  Report Type: 
  Country: None (occurrence: None)
  Receive Date: 20120713
  Receipt Date: 20120625
  Transmission Date: 20120928
  Serious: No
  Sender: FDA-Public Use
  Company Number: US-ASTRAZENECA-2012SE42747

PATIENT
  Age: 52 Year
  Sex: Female
  Weight: 72.6 kg

DRUGS (2)
  1. NEXIUM [Suspect]
     Indication: GASTROOESOPHAGEAL REFLUX DISEASE
     Route: 048
  2. NEXIUM [Suspect]
     Route: 048
     Dates: start: 20120501

REACTIONS (8)
  - ABDOMINAL DISTENSION [None]
  - GASTROINTESTINAL TRACT MUCOSAL PIGMENTATION [None]
  - CONSTIPATION [None]
  - WEIGHT DECREASED [None]
  - MALAISE [None]
  - ABDOMINAL PAIN [None]
  - OFF LABEL USE [None]
  - ARTHRALGIA [None]
